FAERS Safety Report 17014681 (Version 1)
Quarter: 2019Q4

REPORT INFORMATION
  Report Type: Spontaneous
  Country: US (occurrence: US)
  Receive Date: 20191001
  Receipt Date: 20191001
  Transmission Date: 20200122
  Serious: No
  Sender: FDA-Public Use
  Company Number: None

PATIENT
  Age: 39 Year
  Sex: Male
  Weight: 60.9 kg

DRUGS (1)
  1. INTRON A [Suspect]
     Active Substance: INTERFERON ALFA-2B
     Dosage: ?          OTHER DOSE:180MU;?
     Dates: end: 20120427

REACTIONS (2)
  - Skin depigmentation [None]
  - Vitiligo [None]

NARRATIVE: CASE EVENT DATE: 20190611
